FAERS Safety Report 10041688 (Version 1)
Quarter: 2014Q1

REPORT INFORMATION
  Report Type: Spontaneous
  Country: FR (occurrence: None)
  Receive Date: 20140325
  Receipt Date: 20140325
  Transmission Date: 20141002
  Serious: Yes (Congenital Anomaly)
  Sender: FDA-Public Use
  Company Number: 2014-FR-003470

PATIENT
  Sex: Female
  Weight: 3.4 kg

DRUGS (1)
  1. XYREM [Suspect]
     Indication: PRODUCT USED FOR UNKNOWN INDICATION
     Route: 064
     Dates: start: 2013, end: 20130604

REACTIONS (2)
  - Umbilical hernia [None]
  - Maternal drugs affecting foetus [None]
